FAERS Safety Report 14711002 (Version 1)
Quarter: 2018Q2

REPORT INFORMATION
  Report Type: Spontaneous
  Country: IS (occurrence: IS)
  Receive Date: 20180403
  Receipt Date: 20180403
  Transmission Date: 20180711
  Serious: Yes (Hospitalization, Other)
  Sender: FDA-Public Use
  Company Number: IS-MYLANLABS-01P-077-0745476-00

PATIENT
  Age: 38 Year
  Sex: Male

DRUGS (4)
  1. DILTIAZEM. [Suspect]
     Active Substance: DILTIAZEM
     Indication: PRODUCT USED FOR UNKNOWN INDICATION
     Dosage: DAILY DOSE: UNK. FREQUENCY:UNKNOWN
     Route: 065
  2. SORBANGIL [Concomitant]
     Indication: PRODUCT USED FOR UNKNOWN INDICATION
     Dosage: DAILY DOSE: UNK. FREQUENCY:UNKNOWN
  3. ATENOLOL. [Interacting]
     Active Substance: ATENOLOL
     Indication: PRODUCT USED FOR UNKNOWN INDICATION
     Dosage: DAILY DOSE: UNK. FREQUENCY:UNKNOWN
  4. NITROGLYCERIN. [Concomitant]
     Active Substance: NITROGLYCERIN
     Indication: PRODUCT USED FOR UNKNOWN INDICATION
     Dosage: UNK

REACTIONS (17)
  - Sinus bradycardia [Recovered/Resolved]
  - Suicide attempt [Unknown]
  - Haemorrhage [Unknown]
  - Hypothermia [Unknown]
  - Cardiomegaly [Recovered/Resolved]
  - Pneumonia [Unknown]
  - Overdose [Unknown]
  - Hyperglycaemia [Recovered/Resolved]
  - Depressed level of consciousness [Unknown]
  - Myocardial infarction [Unknown]
  - Defect conduction intraventricular [Unknown]
  - Anuria [Recovered/Resolved]
  - Hypotension [Recovered/Resolved]
  - Pulmonary oedema [Recovered/Resolved]
  - Cardiac arrest [Recovered/Resolved]
  - Respiratory failure [Recovered/Resolved]
  - Drug interaction [Unknown]
